FAERS Safety Report 15207078 (Version 1)
Quarter: 2018Q3

REPORT INFORMATION
  Report Type: Spontaneous
  Country: FR (occurrence: FR)
  Receive Date: 20180727
  Receipt Date: 20180727
  Transmission Date: 20181010
  Serious: Yes (Other)
  Sender: FDA-Public Use
  Company Number: FR-BAYER-2018-135690

PATIENT
  Age: 34 Year
  Sex: Female
  Weight: 71.9 kg

DRUGS (2)
  1. MIRENA [Suspect]
     Active Substance: LEVONORGESTREL
     Indication: CONTRACEPTION
     Dosage: 20 MCG/24HR, CONT
     Route: 015
     Dates: start: 201709, end: 20180621
  2. LAMALINE [ATROPA BELLAD EXT,CAFF,PAPAV SOMNIF TINCT,PARACET] [Concomitant]

REACTIONS (6)
  - Sleep disorder [Not Recovered/Not Resolved]
  - Headache [Not Recovered/Not Resolved]
  - Affective disorder [Not Recovered/Not Resolved]
  - Weight increased [Not Recovered/Not Resolved]
  - Fatigue [Not Recovered/Not Resolved]
  - Erythrosis [Not Recovered/Not Resolved]

NARRATIVE: CASE EVENT DATE: 201712
